FAERS Safety Report 12661818 (Version 4)
Quarter: 2016Q3

REPORT INFORMATION
  Report Type: Report from Study
  Country: CZ (occurrence: CZ)
  Receive Date: 20160817
  Receipt Date: 20160915
  Transmission Date: 20161109
  Serious: Yes (Hospitalization)
  Sender: FDA-Public Use
  Company Number: CZ-EISAI MEDICAL RESEARCH-EC-2016-019422

PATIENT
  Age: 34 Year
  Sex: Female
  Weight: 92 kg

DRUGS (14)
  1. FYCOMPA [Suspect]
     Active Substance: PERAMPANEL
     Route: 048
     Dates: start: 20160511, end: 20160615
  2. LACOSAMID [Concomitant]
     Active Substance: LACOSAMIDE
  3. FYCOMPA [Suspect]
     Active Substance: PERAMPANEL
     Route: 048
     Dates: start: 20160220, end: 20160510
  4. PHENYTOIN. [Concomitant]
     Active Substance: PHENYTOIN
  5. ESLICARBAZEPIN [Concomitant]
  6. FYCOMPA [Suspect]
     Active Substance: PERAMPANEL
     Indication: EPILEPSY
     Route: 048
     Dates: start: 20160109, end: 20160120
  7. VALPROATE [Concomitant]
     Active Substance: VALPROIC ACID
  8. OLANZAPIN [Concomitant]
     Active Substance: OLANZAPINE
  9. FYCOMPA [Suspect]
     Active Substance: PERAMPANEL
     Route: 048
     Dates: start: 20160727
  10. ZONISAMID [Concomitant]
  11. FYCOMPA [Suspect]
     Active Substance: PERAMPANEL
     Route: 048
     Dates: start: 20160212, end: 20160219
  12. FYCOMPA [Suspect]
     Active Substance: PERAMPANEL
     Route: 048
     Dates: start: 20160121, end: 20160211
  13. FYCOMPA [Suspect]
     Active Substance: PERAMPANEL
     Route: 048
     Dates: start: 20160616, end: 20160726
  14. CLONAZEPAM. [Concomitant]
     Active Substance: CLONAZEPAM

REACTIONS (2)
  - Abnormal behaviour [Recovered/Resolved]
  - Insomnia [Recovered/Resolved]

NARRATIVE: CASE EVENT DATE: 20160726
